FAERS Safety Report 6104394-0 (Version None)
Quarter: 2009Q1

REPORT INFORMATION
  Report Type: 
  Country: None (occurrence: None)
  Receive Date: 20090305
  Receipt Date: 20090218
  Transmission Date: 20090719
  Serious: Yes (Hospitalization, Disabling)
  Sender: FDA-Public Use
  Company Number: TR-GENENTECH-278288

PATIENT
  Age: 75 Year
  Sex: Female

DRUGS (3)
  1. ACTIVASE [Suspect]
     Indication: CEREBRAL ARTERY OCCLUSION
     Dosage: UNKNOWN
     Route: 042
  2. DIGOXIN [Concomitant]
     Indication: ATRIAL FIBRILLATION
     Dosage: UNKNOWN
  3. ACETYLSALICYLIC ACID [Concomitant]
     Indication: ATRIAL FIBRILLATION
     Dosage: 100 MG, QD

REACTIONS (3)
  - APALLIC SYNDROME [None]
  - COMA [None]
  - ISCHAEMIC STROKE [None]
